FAERS Safety Report 4525336-5 (Version None)
Quarter: 2004Q4

REPORT INFORMATION
  Report Type: 
  Country: None (occurrence: None)
  Receive Date: 20041116
  Receipt Date: 20040729
  Transmission Date: 20050328
  Serious: No
  Sender: FDA-Public Use
  Company Number: S04-USA-05754-01

PATIENT
  Age: 84 Year
  Sex: Male

DRUGS (5)
  1. NAMENDA [Suspect]
     Indication: DEMENTIA
     Dosage: 5 MG QD; PO
     Route: 048
     Dates: start: 20040629, end: 20040705
  2. NAMENDA [Suspect]
     Indication: DEMENTIA
     Dosage: 5 MG BID; PO
     Route: 048
     Dates: start: 20040706, end: 20040712
  3. NAMENDA [Concomitant]
     Indication: DEMENTIA
     Dosage: 15 MG QD; PO
     Route: 048
     Dates: start: 20040713, end: 20040719
  4. NAMENDA [Suspect]
     Indication: DEMENTIA
     Dosage: 10 MG BID; PO
     Route: 048
     Dates: start: 20040720
  5. .... [Concomitant]

REACTIONS (2)
  - HALLUCINATION [None]
  - URINE OUTPUT INCREASED [None]
